FAERS Safety Report 4660534-1 (Version None)
Quarter: 2005Q2

REPORT INFORMATION
  Report Type: 
  Country: None (occurrence: None)
  Receive Date: 20050510
  Receipt Date: 20050510
  Transmission Date: 20051028
  Serious: Yes (Other)
  Sender: FDA-Public Use
  Company Number: None

PATIENT
  Age: 59 Year
  Sex: Female
  Weight: 101.6057 kg

DRUGS (1)
  1. TB TINE TEST [Suspect]
     Dosage: 0.5 ML  ONE TIME , IM
     Route: 030
     Dates: start: 20050125

REACTIONS (4)
  - INJECTION SITE ERYTHEMA [None]
  - INJECTION SITE OEDEMA [None]
  - INJECTION SITE PRURITUS [None]
  - RASH PAPULAR [None]
